FAERS Safety Report 7011680-9 (Version None)
Quarter: 2010Q3

REPORT INFORMATION
  Report Type: 
  Country: None (occurrence: None)
  Receive Date: 20100923
  Receipt Date: 20090417
  Transmission Date: 20110219
  Serious: No
  Sender: FDA-Public Use
  Company Number: US-WYE-H09011009

PATIENT
  Sex: Female
  Weight: 56.3 kg

DRUGS (2)
  1. PREMARIN [Suspect]
     Indication: VULVOVAGINAL DRYNESS
     Dosage: ONE APPLICATOR FULL, 1-2 TIMES PER WEEK
     Route: 067
     Dates: start: 20090226
  2. LITHIUM CARBONATE [Concomitant]

REACTIONS (4)
  - CONSTIPATION [None]
  - INSOMNIA [None]
  - THERAPEUTIC RESPONSE UNEXPECTED [None]
  - WEIGHT INCREASED [None]
